FAERS Safety Report 4628718-6 (Version None)
Quarter: 2005Q1

REPORT INFORMATION
  Report Type: 
  Country: None (occurrence: None)
  Receive Date: 20050107
  Receipt Date: 20041006
  Transmission Date: 20050727
  Serious: No
  Sender: FDA-Public Use
  Company Number: 235040K04USA

PATIENT
  Age: 24 Year
  Sex: Male

DRUGS (1)
  1. REBIF [Suspect]
     Indication: MULTIPLE SCLEROSIS
     Dosage: 8.8 MCG, 3 IN 1 WEEKS
     Dates: start: 20040901

REACTIONS (3)
  - BURNING SENSATION [None]
  - DRUG HYPERSENSITIVITY [None]
  - DYSAESTHESIA [None]
